FAERS Safety Report 9386736 (Version 1)
Quarter: 2013Q3

REPORT INFORMATION
  Report Type: Spontaneous
  Country: US (occurrence: US)
  Receive Date: 20130708
  Receipt Date: 20130708
  Transmission Date: 20140515
  Serious: No
  Sender: FDA-Public Use
  Company Number: US-PFIZER INC-2013196218

PATIENT
  Age: 67 Year
  Sex: Male
  Weight: 77.1 kg

DRUGS (1)
  1. SUTENT [Suspect]
     Indication: THYROID CANCER METASTATIC
     Dosage: 50 MG, CYCLIC (28 D ON FOLLOWED BY 14 D OFF)
     Dates: start: 20110801

REACTIONS (5)
  - Blister [Unknown]
  - Joint swelling [Unknown]
  - Disturbance in attention [Unknown]
  - Mood swings [Unknown]
  - Paranoia [Unknown]
